FAERS Safety Report 5053303-4 (Version None)
Quarter: 2006Q3

REPORT INFORMATION
  Report Type: 
  Country: None (occurrence: None)
  Receive Date: 20060712
  Receipt Date: 20060627
  Transmission Date: 20061208
  Serious: Yes (Other)
  Sender: FDA-Public Use
  Company Number: PAR_0689_2006

PATIENT
  Age: 51 Year
  Sex: Male

DRUGS (3)
  1. IBUPROFEN [Suspect]
     Indication: ARTHRALGIA
     Dosage: DF UNK PO
     Route: 048
     Dates: start: 20060523, end: 20060525
  2. BENDROFLUAZIDE [Concomitant]
  3. ERYTHROMYCIN [Concomitant]

REACTIONS (1)
  - ERYTHEMA MULTIFORME [None]
